FAERS Safety Report 18332772 (Version 2)
Quarter: 2020Q4

REPORT INFORMATION
  Report Type: Report from Study
  Country: None (occurrence: US)
  Receive Date: 20201001
  Receipt Date: 20201110
  Transmission Date: 20210113
  Serious: Yes (Death, Hospitalization)
  Sender: FDA-Public Use
  Company Number: US-ABBVIE-20K-163-3589669-00

PATIENT
  Sex: Female
  Weight: 62.2 kg

DRUGS (3)
  1. CREON [Suspect]
     Active Substance: PANCRELIPASE AMYLASE\PANCRELIPASE LIPASE\PANCRELIPASE PROTEASE
     Indication: PANCREATIC DISORDER
     Dosage: TWO CAPSULES WITH MEALS THREE TIMES A DAY, ONE CAPSULE WITH SNACKS TWICE A DAY
     Route: 048
     Dates: start: 202006, end: 20200717
  2. SPIRONOLACTONE. [Concomitant]
     Active Substance: SPIRONOLACTONE
     Indication: HYPERTENSION
  3. LASIX [Concomitant]
     Active Substance: FUROSEMIDE
     Indication: OEDEMA PERIPHERAL

REACTIONS (9)
  - Cardiopulmonary failure [Fatal]
  - Diarrhoea [Not Recovered/Not Resolved]
  - Peritonitis bacterial [Fatal]
  - Escherichia infection [Fatal]
  - Vomiting [Not Recovered/Not Resolved]
  - Weight decreased [Not Recovered/Not Resolved]
  - Nonalcoholic fatty liver disease [Fatal]
  - Chronic hepatic failure [Fatal]
  - Sepsis [Fatal]

NARRATIVE: CASE EVENT DATE: 2020
